FAERS Safety Report 16180289 (Version 2)
Quarter: 2019Q2

REPORT INFORMATION
  Report Type: Spontaneous
  Country: US (occurrence: US)
  Receive Date: 20190410
  Receipt Date: 20190423
  Transmission Date: 20190711
  Serious: No
  Sender: FDA-Public Use
  Company Number: US-PFIZER INC-2019144504

PATIENT
  Age: 24 Year
  Sex: Female

DRUGS (1)
  1. XELJANZ XR [Suspect]
     Active Substance: TOFACITINIB CITRATE
     Indication: ALOPECIA TOTALIS
     Dosage: 11 MG, UNK

REACTIONS (4)
  - Drug intolerance [Unknown]
  - Product use in unapproved indication [Unknown]
  - Nausea [Unknown]
  - Vomiting [Unknown]
